FAERS Safety Report 10186805 (Version 1)
Quarter: 2014Q2

REPORT INFORMATION
  Report Type: Spontaneous
  Country: US (occurrence: US)
  Receive Date: 20140521
  Receipt Date: 20140521
  Transmission Date: 20141212
  Serious: Yes (Other)
  Sender: FDA-Public Use
  Company Number: US-PFIZER INC-2014136374

PATIENT
  Age: 91 Year
  Sex: Female
  Weight: 74.83 kg

DRUGS (7)
  1. XALATAN [Suspect]
     Indication: GLAUCOMA
     Dosage: 1 GTT (1 DROP IN EACH EYE), DAILY
     Route: 047
  2. XALATAN [Suspect]
     Dosage: UNK
  3. ATENOLOL [Concomitant]
     Indication: HYPERTENSION
     Dosage: 100 MG, DAILY
     Route: 048
  4. CLONIDINE [Concomitant]
     Indication: HYPERTENSION
     Dosage: 0.1 MG, 1 TABLET IN THE MORNING AND 2 AT NIGHT
     Route: 048
  5. AMLODIPINE [Concomitant]
     Indication: HYPERTENSION
     Dosage: 5 MG, DAILY
     Route: 048
  6. ALPHAGAN P [Concomitant]
     Indication: GLAUCOMA
     Dosage: 5 ML, 2X/DAY
  7. ZOCOR [Concomitant]
     Indication: BLOOD CHOLESTEROL INCREASED
     Dosage: 10 MG, DAILY
     Route: 048

REACTIONS (1)
  - Macular degeneration [Not Recovered/Not Resolved]
